FAERS Safety Report 9034153 (Version 1)
Quarter: 2013Q1

REPORT INFORMATION
  Report Type: Spontaneous
  Country: US (occurrence: US)
  Receive Date: 20130128
  Receipt Date: 20130128
  Transmission Date: 20140127
  Serious: Yes (Other)
  Sender: FDA-Public Use
  Company Number: US-AMGEN-USASP2012060343

PATIENT
  Age: 52 Year
  Sex: Female

DRUGS (5)
  1. ENBREL [Suspect]
     Indication: PRODUCT USED FOR UNKNOWN INDICATION
     Dosage: 25 MG, 2 TIMES/WK
     Route: 058
  2. CELEBREX [Concomitant]
     Dosage: 100 MG, UNK
  3. PLAQUENIL                          /00072602/ [Concomitant]
     Dosage: 200 MG, UNK
  4. METHOTREXATE [Concomitant]
     Dosage: 1 UNK
  5. EFFEXOR [Concomitant]
     Dosage: 100 MG, UNK

REACTIONS (4)
  - Staphylococcal infection [Unknown]
  - Eye infection [Unknown]
  - Gastrointestinal infection [Unknown]
  - Infection [Unknown]
